FAERS Safety Report 5894044-0 (Version None)
Quarter: 2008Q3

REPORT INFORMATION
  Report Type: 
  Country: None (occurrence: None)
  Receive Date: 20080923
  Receipt Date: 20080915
  Transmission Date: 20090109
  Serious: Yes (Other)
  Sender: FDA-Public Use
  Company Number: US-ELI_LILLY_AND_COMPANY-US200809003521

PATIENT
  Age: 30 Year
  Sex: Female

DRUGS (1)
  1. BYETTA [Suspect]
     Dosage: 10 UG, UNKNOWN
     Dates: start: 20080601, end: 20080910

REACTIONS (3)
  - EATING DISORDER [None]
  - HEPATIC STEATOSIS [None]
  - LUNG DISORDER [None]
